FAERS Safety Report 15523489 (Version 1)
Quarter: 2018Q4

REPORT INFORMATION
  Report Type: Spontaneous
  Country: US (occurrence: US)
  Receive Date: 20181018
  Receipt Date: 20181018
  Transmission Date: 20190205
  Serious: No
  Sender: FDA-Public Use
  Company Number: US-ASTRAZENECA-2018SF20120

PATIENT
  Age: 46 Year
  Sex: Female
  Weight: 81.6 kg

DRUGS (2)
  1. SYMBICORT [Suspect]
     Active Substance: BUDESONIDE\FORMOTEROL FUMARATE DIHYDRATE
     Indication: ASTHMA
     Dosage: 160/4.5 MCG 2 PUFFS TWICE PER DAY
     Route: 055
     Dates: start: 201808
  2. QVAR [Concomitant]
     Active Substance: BECLOMETHASONE DIPROPIONATE
     Indication: ASTHMA
     Route: 055
     Dates: start: 2018

REACTIONS (15)
  - Asthma [Not Recovered/Not Resolved]
  - Product dose omission [Unknown]
  - Mental disorder [Unknown]
  - Laboratory test abnormal [Unknown]
  - Musculoskeletal discomfort [Not Recovered/Not Resolved]
  - Blood glucose increased [Not Recovered/Not Resolved]
  - Dyspepsia [Unknown]
  - Muscle tightness [Not Recovered/Not Resolved]
  - Rash pruritic [Recovering/Resolving]
  - Peripheral swelling [Unknown]
  - Weight increased [Unknown]
  - Vision blurred [Not Recovered/Not Resolved]
  - Insomnia [Recovering/Resolving]
  - Lymphocyte count increased [Unknown]
  - Weight decreased [Unknown]

NARRATIVE: CASE EVENT DATE: 2018
